FAERS Safety Report 6181133-9 (Version None)
Quarter: 2009Q2

REPORT INFORMATION
  Report Type: 
  Country: None (occurrence: None)
  Receive Date: 20090506
  Receipt Date: 20090505
  Transmission Date: 20091009
  Serious: Yes (Death, Life-Threatening, Hospitalization)
  Sender: FDA-Public Use
  Company Number: GB-ABBOTT-09P-167-0564655-00

PATIENT
  Age: 50 Year
  Sex: Female

DRUGS (3)
  1. KALETRA [Suspect]
     Indication: HIV INFECTION
     Route: 048
     Dates: start: 20090301, end: 20090301
  2. RALTEGRAVIR [Suspect]
     Indication: HIV INFECTION
     Dates: start: 20090201
  3. ETRAVIRINE [Suspect]
     Indication: HIV INFECTION
     Dates: start: 20090201

REACTIONS (4)
  - NEUROPATHY PERIPHERAL [None]
  - RASH [None]
  - TOXIC EPIDERMAL NECROLYSIS [None]
  - VISUAL IMPAIRMENT [None]
